FAERS Safety Report 24269548 (Version 1)
Quarter: 2024Q3

REPORT INFORMATION
  Report Type: Spontaneous
  Country: US (occurrence: US)
  Receive Date: 20240830
  Receipt Date: 20240830
  Transmission Date: 20241017
  Serious: Yes (Hospitalization, Other)
  Sender: JOHNSON AND JOHNSON
  Company Number: US-JNJFOC-20240862466

PATIENT
  Age: 83 Year
  Sex: Female
  Weight: 56.75 kg

DRUGS (1)
  1. XARELTO [Suspect]
     Active Substance: RIVAROXABAN
     Indication: Product used for unknown indication
     Route: 048

REACTIONS (6)
  - Cardiac failure congestive [Unknown]
  - Transcatheter aortic valve implantation [Unknown]
  - Weight decreased [Not Recovered/Not Resolved]
  - Decreased appetite [Unknown]
  - Feeling cold [Unknown]
  - Pain [Unknown]

NARRATIVE: CASE EVENT DATE: 20240101
